FAERS Safety Report 10395650 (Version 2)
Quarter: 2014Q3

REPORT INFORMATION
  Report Type: Spontaneous
  Country: US (occurrence: US)
  Receive Date: 20140820
  Receipt Date: 20140820
  Transmission Date: 20150326
  Serious: Yes (Other)
  Sender: FDA-Public Use
  Company Number: US-ASTRAZENECA-2014SE31471

PATIENT
  Age: 66 Year
  Sex: Male
  Weight: 73.5 kg

DRUGS (3)
  1. CRESTOR [Suspect]
     Active Substance: ROSUVASTATIN CALCIUM
     Indication: BLOOD CHOLESTEROL INCREASED
     Route: 048
     Dates: start: 20140401
  2. CRESTOR [Suspect]
     Active Substance: ROSUVASTATIN CALCIUM
     Indication: BLOOD CHOLESTEROL INCREASED
     Route: 048
     Dates: start: 2004, end: 20140430
  3. CRESTOR [Suspect]
     Active Substance: ROSUVASTATIN CALCIUM
     Indication: BLOOD CHOLESTEROL INCREASED
     Route: 048

REACTIONS (6)
  - Nephrolithiasis [Unknown]
  - Abdominal pain [Recovered/Resolved]
  - Testicular pain [Recovered/Resolved]
  - Blood urine present [Unknown]
  - Blood cholesterol increased [Recovering/Resolving]
  - Drug dose omission [Unknown]

NARRATIVE: CASE EVENT DATE: 201404
